FAERS Safety Report 17810672 (Version 1)
Quarter: 2020Q2

REPORT INFORMATION
  Report Type: Spontaneous
  Country: US (occurrence: US)
  Receive Date: 20200521
  Receipt Date: 20200521
  Transmission Date: 20200714
  Serious: No
  Sender: FDA-Public Use
  Company Number: US-009507513-2005USA006463

PATIENT

DRUGS (1)
  1. NEXPLANON [Suspect]
     Active Substance: ETONOGESTREL
     Dosage: 1 ROD (68 MG FOR OVER 3 YEARS)
     Route: 059
     Dates: start: 2012

REACTIONS (2)
  - Incorrect product administration duration [Unknown]
  - No adverse event [Unknown]
